FAERS Safety Report 9852606 (Version 1)
Quarter: 2014Q1

REPORT INFORMATION
  Report Type: Spontaneous
  Country: US (occurrence: US)
  Receive Date: 20140129
  Receipt Date: 20140129
  Transmission Date: 20141002
  Serious: No
  Sender: FDA-Public Use
  Company Number: US-GLAXOSMITHKLINE-A1025370A

PATIENT
  Age: 51 Year
  Sex: Female

DRUGS (1)
  1. MEPRON [Suspect]
     Indication: PNEUMOCYSTIS JIROVECII PNEUMONIA
     Route: 048

REACTIONS (1)
  - Dysgeusia [Unknown]
